FAERS Safety Report 13072540 (Version 1)
Quarter: 2016Q4

REPORT INFORMATION
  Report Type: Spontaneous
  Country: US (occurrence: US)
  Receive Date: 20161229
  Receipt Date: 20161229
  Transmission Date: 20170207
  Serious: No
  Sender: FDA-Public Use
  Company Number: US-SA-2016SA135355

PATIENT
  Age: 59 Year
  Sex: Male

DRUGS (1)
  1. TAXOTERE [Suspect]
     Active Substance: DOCETAXEL
     Indication: PROSTATE CANCER
     Dosage: FREQUENCY_4TH INFUSION
     Route: 042

REACTIONS (5)
  - Wrong technique in product usage process [Unknown]
  - Blood pressure increased [Not Recovered/Not Resolved]
  - Chemical injury [Not Recovered/Not Resolved]
  - Injection site movement impairment [Not Recovered/Not Resolved]
  - Injection site extravasation [Not Recovered/Not Resolved]
